FAERS Safety Report 5041543-X (Version None)
Quarter: 2006Q2

REPORT INFORMATION
  Report Type: 
  Country: None (occurrence: None)
  Receive Date: 20060627
  Receipt Date: 20060616
  Transmission Date: 20061013
  Serious: Yes (Other)
  Sender: FDA-Public Use
  Company Number: 2006042244

PATIENT
  Age: 47 Year
  Sex: Female
  Weight: 88.4514 kg

DRUGS (4)
  1. LIPITOR [Suspect]
     Indication: BLOOD CHOLESTEROL INCREASED
     Dosage: 10 MG (10 MG, 1 IN 1 D), ORAL
     Route: 048
     Dates: start: 20041001, end: 20060201
  2. BENICAR (OLMEARTAN MEDOXOMIL) [Concomitant]
  3. KLONOPIN [Concomitant]
  4. NEURONTIN [Concomitant]

REACTIONS (9)
  - ANKLE FRACTURE [None]
  - ASTHENIA [None]
  - DIFFICULTY IN WALKING [None]
  - DRUG INEFFECTIVE [None]
  - FALL [None]
  - HYPOAESTHESIA [None]
  - MUSCLE DISORDER [None]
  - NERVE INJURY [None]
  - PAIN IN EXTREMITY [None]
